FAERS Safety Report 7674479-6 (Version None)
Quarter: 2011Q3

REPORT INFORMATION
  Report Type: 
  Country: None (occurrence: None)
  Receive Date: 20110810
  Receipt Date: 20110805
  Transmission Date: 20111222
  Serious: Yes (Death)
  Sender: FDA-Public Use
  Company Number: JP-ROCHE-779120

PATIENT
  Sex: Male
  Weight: 73.1 kg

DRUGS (17)
  1. CAPECITABINE [Suspect]
     Route: 048
     Dates: start: 20100601, end: 20100615
  2. CAPECITABINE [Suspect]
     Route: 048
     Dates: start: 20100713, end: 20100727
  3. OXALIPLATIN [Suspect]
     Route: 041
     Dates: start: 20100803, end: 20100803
  4. IRINOTECAN HCL [Suspect]
     Indication: COLON CANCER
     Dosage: DOSAGE IS UNCERTAIN.
     Route: 041
  5. OXALIPLATIN [Suspect]
     Route: 041
     Dates: start: 20100622, end: 20100622
  6. OXALIPLATIN [Suspect]
     Route: 041
     Dates: start: 20100914, end: 20100914
  7. CAPECITABINE [Suspect]
     Route: 048
     Dates: start: 20100622, end: 20100706
  8. OXALIPLATIN [Suspect]
     Dosage: DOSE DECREASED
     Route: 041
     Dates: start: 20100824, end: 20100824
  9. CAPECITABINE [Suspect]
     Route: 048
     Dates: start: 20100803, end: 20100817
  10. OXALIPLATIN [Suspect]
     Indication: COLON CANCER
     Route: 041
     Dates: start: 20100511, end: 20100511
  11. CAPECITABINE [Suspect]
     Indication: COLON CANCER
     Route: 048
     Dates: start: 20100511, end: 20100525
  12. CAPECITABINE [Suspect]
     Route: 048
     Dates: start: 20100824, end: 20100907
  13. OXALIPLATIN [Suspect]
     Route: 041
     Dates: start: 20100713, end: 20100713
  14. CAPECITABINE [Suspect]
     Route: 048
     Dates: start: 20100914, end: 20100928
  15. OXALIPLATIN [Suspect]
     Route: 041
     Dates: start: 20100601, end: 20100601
  16. PYDOXAL [Concomitant]
     Route: 048
     Dates: start: 20100511, end: 20101015
  17. CAPECITABINE [Suspect]
     Route: 048
     Dates: start: 20101005, end: 20101019

REACTIONS (6)
  - HAEMOGLOBIN DECREASED [None]
  - SEPSIS [None]
  - STOMATITIS [None]
  - BONE MARROW FAILURE [None]
  - PLATELET COUNT DECREASED [None]
  - NEUROPATHY PERIPHERAL [None]
